FAERS Safety Report 9886535 (Version 3)
Quarter: 2014Q2

REPORT INFORMATION
  Report Type: Spontaneous
  Country: US (occurrence: US)
  Receive Date: 20140210
  Receipt Date: 20140610
  Transmission Date: 20141212
  Serious: Yes (Other)
  Sender: FDA-Public Use
  Company Number: US-PFIZER INC-2014037384

PATIENT
  Age: 49 Year
  Sex: Male
  Weight: 60.77 kg

DRUGS (15)
  1. LYRICA [Suspect]
     Indication: NEUROPATHY PERIPHERAL
     Dosage: 75 MG, 2X/DAY
     Route: 048
  2. KLONOPIN [Concomitant]
     Dosage: 1 MG, 2X/DAY
  3. ISENTRESS [Concomitant]
     Dosage: UNK,2X/DAY
  4. TRUVADA [Concomitant]
     Indication: HIV TEST POSITIVE
     Dosage: UNK, DAILY
  5. PERCOCET [Concomitant]
     Indication: PAIN IN EXTREMITY
     Dosage: UNK,AS NEEDED
  6. TRAZODONE [Concomitant]
     Indication: ANXIETY
     Dosage: 200 MG, DAILY
  7. TRAZODONE [Concomitant]
     Indication: SLEEP DISORDER
  8. ZOFRAN [Concomitant]
     Indication: NAUSEA
     Dosage: UNK,AS NEEDED
  9. FUROSEMIDE [Concomitant]
     Indication: PERIPHERAL SWELLING
     Dosage: 20 MG, DAILY
  10. AMLODIPINE BESYLATE [Concomitant]
     Indication: HYPERTENSION
     Dosage: 5 MG, DAILY
     Route: 048
  11. POTASSIUM CHLORIDE [Concomitant]
     Indication: BLOOD POTASSIUM DECREASED
     Dosage: 10 MG, DAILY
  12. NORVIR [Concomitant]
     Indication: HIV TEST POSITIVE
     Dosage: 100 MG, 2X/DAY
     Route: 048
  13. PREZISTA [Concomitant]
     Dosage: 400 MG, DAILY
     Route: 048
  14. DIAZEPAM [Concomitant]
     Dosage: UNK.DAILY
  15. LACTULOSE [Concomitant]
     Indication: AMMONIA INCREASED
     Dosage: UNK,3X/DAY

REACTIONS (2)
  - Ulcer [Recovering/Resolving]
  - Intentional product misuse [Unknown]
